FAERS Safety Report 6373908-8 (Version None)
Quarter: 2009Q3

REPORT INFORMATION
  Report Type: 
  Country: None (occurrence: None)
  Receive Date: 20090924
  Receipt Date: 20090515
  Transmission Date: 20100115
  Serious: No
  Sender: FDA-Public Use
  Company Number: US-ASTRAZENECA-2009UW12612

PATIENT
  Age: 45 Year
  Sex: Female

DRUGS (8)
  1. SEROQUEL [Suspect]
     Dosage: 50-300 MG
     Route: 048
  2. CYMBALTA [Concomitant]
  3. ABILIFY [Concomitant]
  4. NIFEDIPINE [Concomitant]
  5. SIMVASTATIN [Concomitant]
  6. ENALAPRIL MALEATE [Concomitant]
  7. WELLBUTRIN SR [Concomitant]
  8. NOVELIN [Concomitant]

REACTIONS (1)
  - OEDEMA [None]
